FAERS Safety Report 6339001-5 (Version None)
Quarter: 2009Q3

REPORT INFORMATION
  Report Type: 
  Country: None (occurrence: None)
  Receive Date: 20090903
  Receipt Date: 20090826
  Transmission Date: 20100115
  Serious: Yes (Other)
  Sender: FDA-Public Use
  Company Number: PHHY2009DE25378

PATIENT
  Sex: Male

DRUGS (2)
  1. ZOMETA [Suspect]
     Indication: METASTASES TO BONE
     Dosage: 4 MG, QMO
     Route: 042
     Dates: start: 20071201, end: 20090201
  2. SAMARIUM [153 SM] LEXIDRONAM PENTASODIUM [Concomitant]
     Indication: METASTASES TO BONE
     Dosage: 3.5 GBQ UNK
     Route: 042
     Dates: start: 20090417

REACTIONS (5)
  - ABSCESS JAW [None]
  - INCISIONAL DRAINAGE [None]
  - OSTEOMYELITIS [None]
  - OSTEONECROSIS [None]
  - SURGERY [None]
